FAERS Safety Report 20410984 (Version 1)
Quarter: 2022Q1

REPORT INFORMATION
  Report Type: Spontaneous
  Country: US (occurrence: None)
  Receive Date: 20220131
  Receipt Date: 20220131
  Transmission Date: 20220424
  Serious: Yes (Hospitalization)
  Sender: FDA-Public Use
  Company Number: None

PATIENT
  Age: 86 Year
  Sex: Female

DRUGS (1)
  1. DEFERASIROX [Suspect]
     Active Substance: DEFERASIROX
     Indication: Thalassaemia beta
     Dosage: FREQUENCY : DAILY;?
     Route: 048
     Dates: start: 202109

REACTIONS (5)
  - Fall [None]
  - Back injury [None]
  - Blood pressure decreased [None]
  - Blood pressure systolic decreased [None]
  - Abdominal discomfort [None]

NARRATIVE: CASE EVENT DATE: 20220105
